FAERS Safety Report 20499982 (Version 2)
Quarter: 2022Q1

REPORT INFORMATION
  Report Type: Spontaneous
  Country: IL (occurrence: None)
  Receive Date: 20220222
  Receipt Date: 20220302
  Transmission Date: 20220423
  Serious: Yes (Hospitalization, Other)
  Sender: FDA-Public Use
  Company Number: IL-ROCHE-3028632

PATIENT
  Age: 67 Year
  Sex: Female

DRUGS (1)
  1. ROZLYTREK [Suspect]
     Active Substance: ENTRECTINIB
     Indication: Product used for unknown indication
     Route: 065
     Dates: start: 20220124

REACTIONS (7)
  - Left ventricular failure [Unknown]
  - Renal failure [Unknown]
  - Electrolyte imbalance [Unknown]
  - Blood creatinine increased [Unknown]
  - Urinary incontinence [Unknown]
  - Blood potassium increased [Unknown]
  - Troponin increased [Unknown]

NARRATIVE: CASE EVENT DATE: 20220204
